FAERS Safety Report 8047750-6 (Version None)
Quarter: 2012Q1

REPORT INFORMATION
  Report Type: 
  Country: None (occurrence: None)
  Receive Date: 20120116
  Receipt Date: 20120113
  Transmission Date: 20120608
  Serious: Yes (Death)
  Sender: FDA-Public Use
  Company Number: US-VERTEX PHARMACEUTICALS INC.-AE-2012-000771

PATIENT
  Sex: Female

DRUGS (3)
  1. RIBAVIRIN [Concomitant]
     Indication: HEPATITIS C
     Dates: start: 20111209
  2. PEGASYS [Concomitant]
     Indication: HEPATITIS C
     Dates: start: 20111209
  3. INCIVEK [Suspect]
     Indication: HEPATITIS C
     Dates: start: 20111209

REACTIONS (1)
  - DEATH [None]
